FAERS Safety Report 6132087-2 (Version None)
Quarter: 2009Q1

REPORT INFORMATION
  Report Type: 
  Country: None (occurrence: None)
  Receive Date: 20090325
  Receipt Date: 20090319
  Transmission Date: 20090719
  Serious: Yes (Hospitalization)
  Sender: FDA-Public Use
  Company Number: A0729704A

PATIENT
  Age: 40 Year
  Sex: Male

DRUGS (5)
  1. AVANDIA [Suspect]
     Dates: start: 20000101, end: 20070601
  2. METFORMIN [Concomitant]
     Dates: start: 19990830, end: 20070828
  3. INSULIN [Concomitant]
     Dates: start: 20040126
  4. DIABETA [Concomitant]
     Dates: start: 19970911, end: 20030822
  5. NITROGLYCERIN [Concomitant]
     Dates: start: 20050801, end: 20060307

REACTIONS (1)
  - ACUTE MYOCARDIAL INFARCTION [None]
